FAERS Safety Report 4334330-9 (Version None)
Quarter: 2004Q2

REPORT INFORMATION
  Report Type: 
  Country: None (occurrence: None)
  Receive Date: 20040405
  Receipt Date: 20040322
  Transmission Date: 20050107
  Serious: Yes (Death)
  Sender: FDA-Public Use
  Company Number: HQWYE443527FEB04

PATIENT
  Age: 64 Year
  Sex: Male

DRUGS (4)
  1. AMIODARONE (AMIODARONE, INJECTION) [Suspect]
     Indication: ATRIAL FIBRILLATION
     Dosage: BOLUS DOSE; INTRAVENOUS
     Route: 042
  2. AMIODARONE (AMIODARONE, INJECTION) [Suspect]
     Indication: CONGESTIVE CARDIOMYOPATHY
     Dosage: BOLUS DOSE; INTRAVENOUS
     Route: 042
  3. AMIODARONE (AMIODARONE, INJECTION) [Suspect]
     Dosage: INFUSION; INTRAVENOUS
     Route: 042
  4. VERAPAMIL [Concomitant]

REACTIONS (16)
  - BLOOD PRESSURE SYSTOLIC DECREASED [None]
  - CARDIAC ARREST [None]
  - CARDIOGENIC SHOCK [None]
  - CARDIOMEGALY [None]
  - DILATATION VENTRICULAR [None]
  - ECHOCARDIOGRAM ABNORMAL [None]
  - FLUID OVERLOAD [None]
  - GASTROINTESTINAL HAEMORRHAGE [None]
  - HEART RATE INCREASED [None]
  - HEPATIC NECROSIS [None]
  - HEPATITIS [None]
  - METABOLIC ACIDOSIS [None]
  - MYOCARDIAL INFARCTION [None]
  - NEPHROLITHIASIS [None]
  - OESOPHAGITIS [None]
  - RENAL IMPAIRMENT [None]
